FAERS Safety Report 5721338-1 (Version None)
Quarter: 2008Q2

REPORT INFORMATION
  Report Type: 
  Country: None (occurrence: None)
  Receive Date: 20080429
  Receipt Date: 20080422
  Transmission Date: 20081010
  Serious: Yes (Hospitalization)
  Sender: FDA-Public Use
  Company Number: US-MERCK-0804USA04797

PATIENT
  Sex: Female

DRUGS (3)
  1. JANUVIA [Suspect]
     Route: 048
  2. GLIMEPIRIDE [Concomitant]
     Route: 065
  3. METFORMIN [Concomitant]
     Route: 065

REACTIONS (1)
  - PANCREATITIS [None]
